FAERS Safety Report 21823063 (Version 1)
Quarter: 2023Q1

REPORT INFORMATION
  Report Type: Spontaneous
  Country: FR (occurrence: FR)
  Receive Date: 20230105
  Receipt Date: 20230105
  Transmission Date: 20230417
  Serious: Yes (Hospitalization)
  Sender: FDA-Public Use
  Company Number: None

PATIENT
  Age: 83 Year
  Sex: Female

DRUGS (9)
  1. INLYTA [Suspect]
     Active Substance: AXITINIB
     Indication: Clear cell renal cell carcinoma
     Dosage: UNK
     Route: 048
     Dates: start: 202202, end: 202212
  2. KEYTRUDA [Suspect]
     Active Substance: PEMBROLIZUMAB
     Indication: Clear cell renal cell carcinoma
     Dosage: UNK
     Route: 042
     Dates: start: 202202, end: 202212
  3. INNOHEP [Concomitant]
     Active Substance: TINZAPARIN SODIUM
     Dosage: 15,000 IU EVERY 24 HOURS
     Route: 058
  4. LEVOTHYROXINE SODIUM [Concomitant]
     Active Substance: LEVOTHYROXINE SODIUM
     Indication: Hypothyroidism
     Dosage: 150UG EVERY OTHER DAY AND 137.5 UG EVERY OTHER DAY
     Route: 048
  5. POTASSIUM CHLORIDE [Concomitant]
     Active Substance: POTASSIUM CHLORIDE
     Dosage: 1 CAPSULE MORNING AND EVENING
     Route: 048
  6. ZOPICLONE [Concomitant]
     Active Substance: ZOPICLONE
     Dosage: 7.5 MG IN THE EVENING
     Route: 048
  7. MIRTAZAPINE [Concomitant]
     Active Substance: MIRTAZAPINE
     Dosage: 15 MG IN THE EVENING
     Route: 048
  8. ASCORBIC ACID [Concomitant]
     Active Substance: ASCORBIC ACID
     Dosage: 500 MG IN THE MORNING
     Route: 048
  9. FOLIC ACID [Concomitant]
     Active Substance: FOLIC ACID
     Dosage: 1 P DE 5 MG MORNING, MIDDAY AND NIGHT
     Route: 048

REACTIONS (1)
  - Pemphigoid [Recovering/Resolving]

NARRATIVE: CASE EVENT DATE: 20221205
